FAERS Safety Report 16002544 (Version 1)
Quarter: 2019Q1

REPORT INFORMATION
  Report Type: Spontaneous
  Country: US (occurrence: US)
  Receive Date: 20190225
  Receipt Date: 20190225
  Transmission Date: 20190418
  Serious: No
  Sender: FDA-Public Use
  Company Number: US-SA-2019SA046565

PATIENT
  Age: 52 Year
  Sex: Male

DRUGS (10)
  1. LOVASTATIN. [Concomitant]
     Active Substance: LOVASTATIN
  2. LISINOPRIL. [Concomitant]
     Active Substance: LISINOPRIL
  3. DOXYCYCLIN [DOXYCYCLINE HYDROCHLORIDE] [Concomitant]
  4. DUPIXENT [Suspect]
     Active Substance: DUPILUMAB
     Indication: DERMATITIS ATOPIC
     Dosage: 300 MG, QOW
     Route: 058
     Dates: start: 20181016
  5. CEPHALEXIN [CEFALEXIN SODIUM] [Concomitant]
     Active Substance: CEPHALEXIN
  6. ECONAZOLE. [Concomitant]
     Active Substance: ECONAZOLE NITRATE
  7. TRIAMCINOLON [TRIAMCINOLONE] [Concomitant]
  8. CLOBETASOL [Concomitant]
     Active Substance: CLOBETASOL
  9. METFORMIN [Concomitant]
     Active Substance: METFORMIN HYDROCHLORIDE
  10. MUPIROCIN. [Concomitant]
     Active Substance: MUPIROCIN

REACTIONS (2)
  - Seasonal allergy [Not Recovered/Not Resolved]
  - Condition aggravated [Not Recovered/Not Resolved]
